FAERS Safety Report 4918179-1 (Version None)
Quarter: 2006Q1

REPORT INFORMATION
  Report Type: 
  Country: None (occurrence: None)
  Receive Date: 20060215
  Receipt Date: 20060203
  Transmission Date: 20060701
  Serious: Yes (Other)
  Sender: FDA-Public Use
  Company Number: 13416

PATIENT
  Age: 46 Year
  Sex: Male

DRUGS (2)
  1. BLEOMYCIN [Suspect]
     Indication: SQUAMOUS CELL CARCINOMA
     Dosage: 30 MG 2/WK IV
     Route: 042
  2. BLEOMYCIN [Suspect]
     Indication: SQUAMOUS CELL CARCINOMA
     Dosage: 90 MG IV
     Route: 042

REACTIONS (4)
  - ERYTHEMA [None]
  - METAPLASIA [None]
  - NECROSIS [None]
  - PIGMENTATION DISORDER [None]
